FAERS Safety Report 9033859 (Version 1)
Quarter: 2013Q1

REPORT INFORMATION
  Report Type: Spontaneous
  Country: US (occurrence: US)
  Receive Date: 20130128
  Receipt Date: 20130128
  Transmission Date: 20140127
  Serious: Yes (Death)
  Sender: FDA-Public Use
  Company Number: US-AMGEN-USASP2012069808

PATIENT
  Age: 68 Year
  Sex: Male

DRUGS (14)
  1. ENBREL [Suspect]
     Indication: RHEUMATOID ARTHRITIS
     Dosage: 50 MG, QWK
     Route: 058
  2. PRIMIDONE [Concomitant]
     Dosage: 50 MG, UNK
  3. OMEPRAZOLE [Concomitant]
     Dosage: 20 MG, UNK
  4. METFORMIN [Concomitant]
     Dosage: 500 MG, UNK
  5. SULFASALAZINE [Concomitant]
     Dosage: 500 MG, UNK
  6. POTASSIUM [Concomitant]
     Dosage: 75 MG, UNK
  7. UROXATRAL [Concomitant]
     Dosage: 10 MG, UNK
  8. VITAMIN B-12 [Concomitant]
     Dosage: 500 MUG, UNK
  9. MULTIVITAMIN                       /00097801/ [Concomitant]
     Dosage: UNK
  10. LEVOTHYROXIN [Concomitant]
     Dosage: 50 MUG, UNK
  11. METOPROLOL [Concomitant]
     Dosage: 50 MG, UNK
  12. SIMVASTATIN [Concomitant]
     Dosage: 10 MG, UNK
  13. ZOLPIDEM [Concomitant]
     Dosage: 5 MG, UNK
  14. SERTRALINE [Concomitant]
     Dosage: 25 MG, UNK

REACTIONS (1)
  - Death [Fatal]
